FAERS Safety Report 8534624-7 (Version None)
Quarter: 2012Q3

REPORT INFORMATION
  Report Type: 
  Country: None (occurrence: None)
  Receive Date: 20120724
  Receipt Date: 20120710
  Transmission Date: 20120928
  Serious: Yes (Other)
  Sender: FDA-Public Use
  Company Number: US-ENDO PHARMACEUTICALS INC.-OPCR20121185

PATIENT
  Sex: Female

DRUGS (4)
  1. NORCO [Concomitant]
     Indication: PAIN
     Dosage: 50MG/1625MG
     Route: 048
  2. OPANA ER [Suspect]
     Route: 048
     Dates: start: 20120101, end: 20120702
  3. OPANA ER [Suspect]
     Indication: CANCER PAIN
     Route: 048
     Dates: start: 20120101, end: 20120702
  4. OPANA ER [Suspect]
     Route: 048
     Dates: start: 20120101, end: 20120101

REACTIONS (4)
  - INTENTIONAL DRUG MISUSE [None]
  - WITHDRAWAL SYNDROME [None]
  - BLOOD PRESSURE INCREASED [None]
  - CHEST DISCOMFORT [None]
